FAERS Safety Report 5440860-9 (Version None)
Quarter: 2007Q3

REPORT INFORMATION
  Report Type: 
  Country: None (occurrence: None)
  Receive Date: 20070731
  Receipt Date: 20070524
  Transmission Date: 20080115
  Serious: No
  Sender: FDA-Public Use
  Company Number: US200705006515

PATIENT
  Sex: Female

DRUGS (3)
  1. BYETTA [Suspect]
     Indication: TYPE 2 DIABETES MELLITUS
     Dosage: 5 UG, 2/D, SUBCUTANEOUS, 10 UG 2/D SUBCUTANEOUS
     Route: 058
     Dates: start: 20070101, end: 20070301
  2. BYETTA [Suspect]
     Indication: TYPE 2 DIABETES MELLITUS
     Dosage: 5 UG, 2/D, SUBCUTANEOUS, 10 UG 2/D SUBCUTANEOUS
     Route: 058
     Dates: start: 20070301
  3. EXENATIDE [Concomitant]

REACTIONS (3)
  - BACK PAIN [None]
  - CONSTIPATION [None]
  - NAUSEA [None]
